FAERS Safety Report 9733502 (Version 1)
Quarter: 2013Q4

REPORT INFORMATION
  Report Type: Spontaneous
  Country: CA (occurrence: CA)
  Receive Date: 20131205
  Receipt Date: 20131205
  Transmission Date: 20140711
  Serious: Yes (Death)
  Sender: FDA-Public Use
  Company Number: CA-B.I. PHARMACEUTICALS,INC./RIDGEFIELD-2013-BI-40618CN

PATIENT
  Age: 83 Year
  Sex: Male
  Weight: 90 kg

DRUGS (6)
  1. PRADAXA [Suspect]
     Dosage: 300 MG
     Route: 065
  2. ARICEPT [Concomitant]
  3. GLUCOPHAGE [Concomitant]
  4. LIPITOR [Concomitant]
  5. LOZIDE [Concomitant]
  6. VASOTEC [Concomitant]

REACTIONS (7)
  - Activated partial thromboplastin time prolonged [Fatal]
  - Anaemia [Fatal]
  - Blood creatinine increased [Fatal]
  - Coagulopathy [Fatal]
  - Gastrointestinal haemorrhage [Fatal]
  - International normalised ratio increased [Fatal]
  - Urogenital haemorrhage [Fatal]
